FAERS Safety Report 19321752 (Version 2)
Quarter: 2021Q2

REPORT INFORMATION
  Report Type: Spontaneous
  Country: FR (occurrence: FR)
  Receive Date: 20210527
  Receipt Date: 20210624
  Transmission Date: 20210717
  Serious: Yes (Hospitalization, Other)
  Sender: FDA-Public Use
  Company Number: FR-ALSI-2021000150

PATIENT
  Age: 53 Year
  Sex: Female

DRUGS (1)
  1. OXYGEN. [Suspect]
     Active Substance: OXYGEN
     Indication: RESPIRATORY FAILURE
     Route: 055
     Dates: start: 20120403

REACTIONS (4)
  - Feeling abnormal [Recovered/Resolved]
  - Intentional product misuse [Recovered/Resolved]
  - Burns second degree [Recovered/Resolved]
  - Accident [Recovered/Resolved]

NARRATIVE: CASE EVENT DATE: 20210513
